FAERS Safety Report 20080151 (Version 2)
Quarter: 2022Q1

REPORT INFORMATION
  Report Type: Spontaneous
  Country: None (occurrence: NL)
  Receive Date: 20211117
  Receipt Date: 20220117
  Transmission Date: 20220423
  Serious: Yes (Life-Threatening, Hospitalization)
  Sender: FDA-Public Use
  Company Number: NL-Acacia Pharma Limited-2121952

PATIENT
  Age: 63 Year
  Sex: Male

DRUGS (2)
  1. BYFAVO [Suspect]
     Active Substance: REMIMAZOLAM BESYLATE
     Indication: Sedative therapy
     Route: 042
     Dates: start: 20211103, end: 20211103
  2. REMIFENTANIL [Suspect]
     Active Substance: REMIFENTANIL
     Route: 042
     Dates: start: 20211103, end: 20211103

REACTIONS (2)
  - Cardiac arrest [Unknown]
  - Off label use [Recovered/Resolved]

NARRATIVE: CASE EVENT DATE: 20211103
